FAERS Safety Report 17184852 (Version 1)
Quarter: 2019Q4

REPORT INFORMATION
  Report Type: Spontaneous
  Country: US (occurrence: US)
  Receive Date: 20191220
  Receipt Date: 20191220
  Transmission Date: 20200122
  Serious: No
  Sender: FDA-Public Use
  Company Number: US-BAYER-2019-232178

PATIENT
  Age: 45 Year
  Sex: Female

DRUGS (3)
  1. CLIMARA [Suspect]
     Active Substance: ESTRADIOL
     Route: 062
  2. TRILEPTAL [Concomitant]
     Active Substance: OXCARBAZEPINE
  3. PROZAC [Concomitant]
     Active Substance: FLUOXETINE HYDROCHLORIDE

REACTIONS (4)
  - Application site irritation [None]
  - Product use issue [None]
  - Application site erythema [None]
  - Product adhesion issue [None]
